FAERS Safety Report 23710312 (Version 2)
Quarter: 2024Q2

REPORT INFORMATION
  Report Type: Spontaneous
  Country: US (occurrence: US)
  Receive Date: 20240405
  Receipt Date: 20240507
  Transmission Date: 20240716
  Serious: No
  Sender: FDA-Public Use
  Company Number: US-HALEON-2166428

PATIENT

DRUGS (1)
  1. ABREVA [Suspect]
     Active Substance: DOCOSANOL
     Dosage: EXPDATE:202412 EXPDATE:202412

REACTIONS (2)
  - Rash macular [Unknown]
  - Product complaint [Unknown]
